FAERS Safety Report 14074413 (Version 1)
Quarter: 2017Q4

REPORT INFORMATION
  Report Type: Spontaneous
  Country: CN (occurrence: CN)
  Receive Date: 20171011
  Receipt Date: 20171011
  Transmission Date: 20180321
  Serious: Yes (Other)
  Sender: FDA-Public Use
  Company Number: CN-PFIZER INC-2017436991

PATIENT
  Age: 75 Year
  Sex: Male
  Weight: 56 kg

DRUGS (2)
  1. SOLU-MEDROL [Suspect]
     Active Substance: METHYLPREDNISOLONE SODIUM SUCCINATE
     Dosage: 20 MG, 1X/DAY
     Route: 041
     Dates: start: 20170809, end: 20170809
  2. SOLU-MEDROL [Suspect]
     Active Substance: METHYLPREDNISOLONE SODIUM SUCCINATE
     Indication: PYREXIA
     Dosage: 40 MG, 1X/DAY
     Route: 041
     Dates: start: 20170729, end: 20170729

REACTIONS (2)
  - Hyperglycaemia [Recovering/Resolving]
  - Hypothermia [Recovering/Resolving]

NARRATIVE: CASE EVENT DATE: 20170729
